FAERS Safety Report 9547503 (Version 1)
Quarter: 2013Q2

REPORT INFORMATION
  Report Type: Spontaneous
  Country: US (occurrence: None)
  Receive Date: 20130524
  Receipt Date: 20130524
  Transmission Date: 20140414
  Serious: No
  Sender: FDA-Public Use
  Company Number: PHEH2013US004250

PATIENT
  Age: 54 Year
  Sex: Female

DRUGS (4)
  1. GILENYA (FINGOLIMOD) CAPSULE, 0.5MG [Suspect]
     Indication: MULTIPLE SCLEROSIS
     Route: 048
     Dates: start: 201206
  2. ZOCOR [Concomitant]
  3. NEURONTIN [Concomitant]
  4. SYNTHROID [Concomitant]

REACTIONS (1)
  - Dyspepsia [None]
